FAERS Safety Report 14059215 (Version 1)
Quarter: 2017Q4

REPORT INFORMATION
  Report Type: Report from Study
  Country: US (occurrence: US)
  Receive Date: 20171006
  Receipt Date: 20171006
  Transmission Date: 20180321
  Serious: No
  Sender: FDA-Public Use
  Company Number: US-AMGEN-USASL2017027030

PATIENT
  Sex: Female

DRUGS (3)
  1. PROLIA [Suspect]
     Active Substance: DENOSUMAB
     Indication: BREAST CANCER FEMALE
     Dosage: UNK
     Route: 065
  2. PROLIA [Suspect]
     Active Substance: DENOSUMAB
     Indication: NON-HODGKIN^S LYMPHOMA
  3. PROLIA [Suspect]
     Active Substance: DENOSUMAB
     Indication: ACTIVATED PROTEIN C RESISTANCE

REACTIONS (1)
  - Off label use [Unknown]
